FAERS Safety Report 6329404-7 (Version None)
Quarter: 2009Q3

REPORT INFORMATION
  Report Type: 
  Country: None (occurrence: None)
  Receive Date: 20090826
  Receipt Date: 20090819
  Transmission Date: 20100115
  Serious: Yes (Other)
  Sender: FDA-Public Use
  Company Number: A0803089A

PATIENT
  Age: 65 Year
  Sex: Female

DRUGS (7)
  1. ADVAIR HFA [Suspect]
     Indication: ASTHMA
     Dosage: 1PUFF TWICE PER DAY
     Route: 055
  2. ASPIRIN [Concomitant]
  3. FLUOXETINE [Concomitant]
  4. BENICAR [Concomitant]
  5. LAMOTRIGINE [Concomitant]
  6. CLONAZEPAM [Concomitant]
  7. CLARITIN [Concomitant]

REACTIONS (4)
  - ASTHMA [None]
  - CATARACT [None]
  - DYSPNOEA [None]
  - MEDICATION ERROR [None]
